FAERS Safety Report 10376714 (Version 2)
Quarter: 2014Q4

REPORT INFORMATION
  Report Type: Spontaneous
  Country: IT (occurrence: IT)
  Receive Date: 20140811
  Receipt Date: 20141128
  Transmission Date: 20150528
  Serious: Yes (Hospitalization, Other)
  Sender: FDA-Public Use
  Company Number: IT-PFIZER INC-2014222392

PATIENT
  Age: 32 Year
  Sex: Female

DRUGS (2)
  1. EFFEXOR [Suspect]
     Active Substance: VENLAFAXINE HYDROCHLORIDE
     Dosage: 450 MG, DAILY
     Route: 048
     Dates: start: 20140716
  2. EN [Suspect]
     Active Substance: DELORAZEPAM
     Dosage: 10 ML, DAILY
     Route: 048
     Dates: start: 20140716

REACTIONS (3)
  - Drug abuse [Unknown]
  - Sopor [Recovered/Resolved]
  - Intentional self-injury [Recovered/Resolved]

NARRATIVE: CASE EVENT DATE: 20140716
